FAERS Safety Report 4572147-0 (Version None)
Quarter: 2005Q1

REPORT INFORMATION
  Report Type: 
  Country: None (occurrence: None)
  Receive Date: 20050202
  Receipt Date: 20050113
  Transmission Date: 20050727
  Serious: Yes (Other)
  Sender: FDA-Public Use
  Company Number: USA050188341

PATIENT
  Age: 78 Year
  Sex: Female

DRUGS (5)
  1. FORTEO [Suspect]
     Indication: OSTEOPOROSIS
     Dates: start: 20050112, end: 20050112
  2. ARTHROTEC [Concomitant]
  3. FOLIC ACID [Concomitant]
  4. METHOTREXATE [Concomitant]
  5. REUMACID (INDOMETACIN) [Concomitant]

REACTIONS (5)
  - BACK PAIN [None]
  - CHEST PAIN [None]
  - DRUG HYPERSENSITIVITY [None]
  - EXTRASYSTOLES [None]
  - NECK PAIN [None]
